FAERS Safety Report 6241680-8 (Version None)
Quarter: 2009Q2

REPORT INFORMATION
  Report Type: 
  Country: None (occurrence: None)
  Receive Date: 20090623
  Receipt Date: 20090611
  Transmission Date: 20091009
  Serious: Yes (Disabling)
  Sender: FDA-Public Use
  Company Number: FR-ELI_LILLY_AND_COMPANY-FR200906002840

PATIENT
  Age: 45 Year
  Sex: Male

DRUGS (1)
  1. PROZAC [Suspect]
     Dosage: 20 MG, DAILY (1/D)
     Route: 048
     Dates: start: 19890101

REACTIONS (2)
  - MUSCLE SPASMS [None]
  - RESTLESS LEGS SYNDROME [None]
